FAERS Safety Report 20813852 (Version 2)
Quarter: 2022Q2

REPORT INFORMATION
  Report Type: Spontaneous
  Country: CN (occurrence: CN)
  Receive Date: 20220511
  Receipt Date: 20220513
  Transmission Date: 20220721
  Serious: Yes (Hospitalization, Other)
  Sender: FDA-Public Use
  Company Number: CN-SA-SAC20220325000437

PATIENT
  Age: 77 Year
  Sex: Male
  Weight: 94 kg

DRUGS (2)
  1. DUPIXENT [Suspect]
     Active Substance: DUPILUMAB
     Indication: Dermatitis atopic
     Dosage: UNK
  2. METHYLPREDNISOLONE [Concomitant]
     Active Substance: METHYLPREDNISOLONE
     Indication: Dermatitis atopic
     Dosage: UNK

REACTIONS (12)
  - Gait inability [Unknown]
  - Cerebrovascular accident [Unknown]
  - Insomnia [Unknown]
  - Drug eruption [Recovering/Resolving]
  - Pruritus [Recovering/Resolving]
  - Dizziness [Unknown]
  - Vertigo [Unknown]
  - Skin haemorrhage [Unknown]
  - Discomfort [Unknown]
  - Urticaria [Unknown]
  - Hypersensitivity [Recovering/Resolving]
  - Rash papular [Recovering/Resolving]

NARRATIVE: CASE EVENT DATE: 20220101
